FAERS Safety Report 8027230-4 (Version None)
Quarter: 2012Q1

REPORT INFORMATION
  Report Type: 
  Country: None (occurrence: None)
  Receive Date: 20120105
  Receipt Date: 20120105
  Transmission Date: 20120608
  Serious: Yes (Life-Threatening, Hospitalization)
  Sender: FDA-Public Use
  Company Number: None

PATIENT
  Age: 64 Year
  Sex: Male

DRUGS (2)
  1. PIPERACILLIN AND TAZOBACTAM [Suspect]
     Indication: PNEUMONIA
     Dosage: 4.5 GM ONCE IV
     Route: 042
     Dates: start: 20110810, end: 20110810
  2. PIPERACILLIN AND TAZOBACTAM [Suspect]
     Indication: NOSOCOMIAL INFECTION
     Dosage: 4.5 GM ONCE IV
     Route: 042
     Dates: start: 20110810, end: 20110810

REACTIONS (4)
  - RESPIRATORY DEPRESSION [None]
  - URTICARIA [None]
  - PRURITUS [None]
  - LIP SWELLING [None]
